FAERS Safety Report 7247851-6 (Version None)
Quarter: 2011Q1

REPORT INFORMATION
  Report Type: 
  Country: None (occurrence: None)
  Receive Date: 20110127
  Receipt Date: 20110120
  Transmission Date: 20110831
  Serious: Yes (Hospitalization, Other)
  Sender: FDA-Public Use
  Company Number: US-PFIZER INC-2011015322

PATIENT
  Sex: Male

DRUGS (1)
  1. CHANTIX [Suspect]
     Dosage: UNK
     Dates: start: 20081201

REACTIONS (5)
  - ROAD TRAFFIC ACCIDENT [None]
  - ANXIETY [None]
  - LOSS OF CONSCIOUSNESS [None]
  - DEPRESSION [None]
  - HOSTILITY [None]
